FAERS Safety Report 21569621 (Version 1)
Quarter: 2022Q4

REPORT INFORMATION
  Report Type: Spontaneous
  Country: BR (occurrence: None)
  Receive Date: 20221109
  Receipt Date: 20221109
  Transmission Date: 20230113
  Serious: Yes (Other)
  Sender: FDA-Public Use
  Company Number: BR-ROCHE-3212886

PATIENT
  Age: 40 Year
  Sex: Female
  Weight: 66 kg

DRUGS (6)
  1. ADO-TRASTUZUMAB EMTANSINE [Suspect]
     Active Substance: ADO-TRASTUZUMAB EMTANSINE
     Indication: Breast cancer
     Route: 065
     Dates: start: 20220511
  2. HERCEPTIN [Suspect]
     Active Substance: TRASTUZUMAB
     Indication: Breast cancer
     Route: 065
     Dates: start: 20201201
  3. PERJETA [Suspect]
     Active Substance: PERTUZUMAB
     Indication: Breast cancer
     Route: 065
     Dates: start: 20201201
  4. PREDNISONE [Concomitant]
     Active Substance: PREDNISONE
  5. PACLITAXEL [Concomitant]
     Active Substance: PACLITAXEL
     Dates: start: 20201201, end: 20220103
  6. TRAMADOL [Concomitant]
     Active Substance: TRAMADOL

REACTIONS (11)
  - Nodule [Recovering/Resolving]
  - Ill-defined disorder [Recovering/Resolving]
  - Nephrolithiasis [Unknown]
  - Asthenia [Recovering/Resolving]
  - Asthenia [Recovering/Resolving]
  - Musculoskeletal pain [Recovering/Resolving]
  - Disease progression [Recovering/Resolving]
  - Hepatic lesion [Recovering/Resolving]
  - Hepatic calcification [Recovering/Resolving]
  - Intestinal dilatation [Recovering/Resolving]
  - Lung neoplasm [Recovering/Resolving]

NARRATIVE: CASE EVENT DATE: 20210123
